FAERS Safety Report 6245784-5 (Version None)
Quarter: 2009Q2

REPORT INFORMATION
  Report Type: 
  Country: None (occurrence: None)
  Receive Date: 20090624
  Receipt Date: 20090618
  Transmission Date: 20091009
  Serious: No
  Sender: FDA-Public Use
  Company Number: 20096927

PATIENT
  Sex: Female

DRUGS (1)
  1. LIORESAL [Suspect]
     Indication: MUSCLE SPASTICITY
     Dosage: 75 MCG, DAILY, INTRATHECAL
     Route: 037

REACTIONS (11)
  - DEVICE FAILURE [None]
  - DEVICE MIGRATION [None]
  - DIZZINESS [None]
  - DRUG WITHDRAWAL SYNDROME [None]
  - FEELING ABNORMAL [None]
  - GAIT DISTURBANCE [None]
  - HEADACHE [None]
  - NEUROPATHY PERIPHERAL [None]
  - OVERDOSE [None]
  - VERTIGO [None]
  - VISUAL IMPAIRMENT [None]
